FAERS Safety Report 18515421 (Version 4)
Quarter: 2021Q1

REPORT INFORMATION
  Report Type: Other
  Country: CZ (occurrence: CZ)
  Receive Date: 20201118
  Receipt Date: 20210120
  Transmission Date: 20210419
  Serious: Yes (Hospitalization, Disabling, Other)
  Sender: FDA-Public Use
  Company Number: CZ-ACCORD-208295

PATIENT
  Age: 86 Year
  Sex: Female

DRUGS (29)
  1. EUTHYROX [Interacting]
     Active Substance: LEVOTHYROXINE SODIUM
     Indication: AUTOIMMUNE THYROIDITIS
     Dosage: STRENGTH: 100 MICROGRAM/TABLET DOSE: 1?0?0, 100 UG, QD
     Route: 048
  2. BETALOC ZOK [Interacting]
     Active Substance: METOPROLOL SUCCINATE
     Indication: HYPERTENSION
     Dosage: STRENGTH: 25 MG DOSE: 1?0?0, 25 MG, QD
     Route: 048
  3. AGEN [Interacting]
     Active Substance: AMLODIPINE BESYLATE
     Indication: HYPERTENSION
     Dosage: STRENGTH: 5 MG DOSE: 1?0?0, 5 MG, QD
     Route: 048
  4. PREGABALIN. [Concomitant]
     Active Substance: PREGABALIN
     Indication: POST HERPETIC NEURALGIA
  5. DUROGESIC [Interacting]
     Active Substance: FENTANYL
     Indication: PAIN
     Dates: start: 2015
  6. GUTTALAX [SODIUM PICOSULFATE] [Interacting]
     Active Substance: SODIUM PICOSULFATE
     Indication: CONSTIPATION
     Dosage: 10?20 GUTTES,IN THE EVENING
     Route: 048
  7. ROSUCARD [Interacting]
     Active Substance: ROSUVASTATIN CALCIUM
     Indication: PRODUCT USED FOR UNKNOWN INDICATION
     Dosage: STRENGTH 20 MG, 20 MG, QD
     Route: 048
  8. ZOLPIDEM [Interacting]
     Active Substance: ZOLPIDEM TARTRATE
     Dosage: OVERUSED
  9. IBALGIN [Interacting]
     Active Substance: IBUPROFEN
     Indication: PAIN
     Dosage: UNK
  10. CALCICHEW D3 [Interacting]
     Active Substance: CALCIUM\CHOLECALCIFEROL
     Indication: CALCIUM DEFICIENCY
     Dosage: DOSE: 0?0?1
     Route: 048
  11. CARDILAN [NICOFURANOSE] [Interacting]
     Active Substance: NICOFURANOSE
     Indication: ENCEPHALOPATHY
     Dosage: DOSE: 0?1?0
     Route: 048
  12. PARACETAMOL [Interacting]
     Active Substance: ACETAMINOPHEN
     Indication: PAIN
     Dosage: 1.5 DF (3?4 TIMES A DAY)
     Route: 048
  13. OXAZEPAM. [Interacting]
     Active Substance: OXAZEPAM
     Dosage: OVERUSED
     Route: 048
  14. PREDNISONE. [Interacting]
     Active Substance: PREDNISONE
     Indication: STEROID THERAPY
     Dosage: STRENGTH: 5 MG DOSE: 1?0?0, UNK, QD
     Route: 048
  15. ELIQUIS [Interacting]
     Active Substance: APIXABAN
     Indication: ANTICOAGULANT THERAPY
     Dosage: STRENGTH: 5 MG DOSE: 1?0?1
     Route: 048
  16. CORDARONE [Interacting]
     Active Substance: AMIODARONE HYDROCHLORIDE
     Indication: ATRIAL FIBRILLATION
     Dosage: STRENGTH: 200 MG DOSE: 1?0?0, 200 MG, QD
     Route: 048
  17. FOLIC ACID. [Interacting]
     Active Substance: FOLIC ACID
     Indication: PRODUCT USED FOR UNKNOWN INDICATION
     Dosage: 10 MG
     Route: 048
  18. ORAMELLOX [Interacting]
     Active Substance: MELOXICAM
     Indication: PAIN
     Dosage: STRENGTH: 15 MG TAKEN APPROX. 3 TIMES PER WEEK
     Route: 048
     Dates: start: 2015
  19. CONTROLOC [Interacting]
     Active Substance: PANTOPRAZOLE SODIUM
     Indication: NAUSEA
     Dosage: DOSE: 1?0?0, 20 MG, QD
     Route: 048
  20. TEZEO [Interacting]
     Active Substance: TELMISARTAN
     Indication: HYPERTENSION
     Dosage: 80/12.5 MG,  DOSE: 1?0?0
     Route: 048
  21. METAMIZOLE SODIUM [Interacting]
     Active Substance: METAMIZOLE SODIUM
     Indication: POST HERPETIC NEURALGIA
     Dosage: 1?0?1
     Route: 048
     Dates: start: 2015
  22. HYPNOGEN [Interacting]
     Active Substance: ZOLPIDEM TARTRATE
     Dosage: OVERUSED
  23. TRAMADOL. [Interacting]
     Active Substance: TRAMADOL
     Indication: PRODUCT USED FOR UNKNOWN INDICATION
     Dosage: OVERUSED
     Route: 048
  24. DUROGESIC [Interacting]
     Active Substance: FENTANYL
     Indication: POST HERPETIC NEURALGIA
     Dosage: 25 MICROGRAM/H A 72 HOUR, 25 UG, Q72H
     Route: 062
     Dates: start: 2015
  25. NOVALGIN [CAFFEINE;PARACETAMOL;PROPYPHENAZONE] [Interacting]
     Active Substance: ACETAMINOPHEN\CAFFEINE\PROPYPHENAZONE
     Indication: PRODUCT USED FOR UNKNOWN INDICATION
     Dosage: DOSE: 1?0?1, 500 MG, Q12H
  26. ORAMELLOX [Interacting]
     Active Substance: MELOXICAM
     Indication: POST HERPETIC NEURALGIA
     Dosage: 1 DF, QW
     Route: 048
     Dates: start: 2015
  27. CONDROSULF [Interacting]
     Active Substance: SODIUM CHONDROITIN SULFATE
     Indication: RHEUMATOID ARTHRITIS
     Dosage: STRENGTH: 800 MG DOSE: 0?0?1, 800 MG, QD
     Route: 048
  28. LEVOTHYROXINE SODIUM. [Suspect]
     Active Substance: LEVOTHYROXINE SODIUM
     Indication: AUTOIMMUNE THYROIDITIS
     Dosage: DOSE REDUCED
     Route: 048
  29. METHOTREXATE. [Suspect]
     Active Substance: METHOTREXATE
     Indication: RHEUMATOID ARTHRITIS
     Dosage: 1?0?0 (SUNDAY), 10 MG, QW
     Route: 048
     Dates: start: 2010

REACTIONS (47)
  - Cognitive disorder [Recovered/Resolved]
  - Nausea [Recovered/Resolved]
  - Drug interaction [Unknown]
  - Mobility decreased [Recovered/Resolved]
  - Loss of personal independence in daily activities [Recovered/Resolved]
  - Intentional product misuse [Unknown]
  - Hypertension [Recovering/Resolving]
  - Product use issue [Unknown]
  - Dehydration [Recovered/Resolved]
  - Reduced facial expression [Recovered/Resolved]
  - Immobile [Recovered/Resolved]
  - General physical health deterioration [Recovering/Resolving]
  - Pelvic fracture [Recovered/Resolved]
  - Fracture [Recovered/Resolved]
  - Poor quality sleep [Recovered/Resolved]
  - Discomfort [Recovered/Resolved]
  - Sleep disorder [Recovering/Resolving]
  - Hypokalaemia [Recovered/Resolved]
  - Vertigo [Recovered/Resolved]
  - Concomitant disease aggravated [Recovering/Resolving]
  - Foreign body [Recovered/Resolved]
  - Anxiety [Recovered/Resolved]
  - Deafness [Recovered/Resolved]
  - Affect lability [Recovered/Resolved]
  - Dizziness [Recovered/Resolved]
  - Liver function test increased [Recovered/Resolved]
  - Medication error [Unknown]
  - Restlessness [Recovered/Resolved]
  - Hypoacusis [Recovered/Resolved]
  - Incorrect dose administered [Unknown]
  - Listless [Recovering/Resolving]
  - Atrial fibrillation [Recovered/Resolved]
  - Apathy [Recovered/Resolved]
  - Oxygen saturation decreased [Recovered/Resolved]
  - Delirium [Recovered/Resolved]
  - Drug abuse [Unknown]
  - Bedridden [Recovered/Resolved]
  - Overdose [Unknown]
  - Head discomfort [Recovered/Resolved]
  - Hyponatraemia [Recovered/Resolved]
  - Confusional state [Recovering/Resolving]
  - Urinary retention [Recovered/Resolved]
  - Encephalopathy [Recovering/Resolving]
  - Condition aggravated [Recovered/Resolved]
  - Prescription drug used without a prescription [Unknown]
  - Contusion [Recovered/Resolved]
  - Fall [Unknown]

NARRATIVE: CASE EVENT DATE: 2018
